FAERS Safety Report 9258776 (Version 1)
Quarter: 2013Q2

REPORT INFORMATION
  Report Type: Spontaneous
  Country: US (occurrence: US)
  Receive Date: 20130426
  Receipt Date: 20130426
  Transmission Date: 20140414
  Serious: Yes (Other)
  Sender: FDA-Public Use
  Company Number: US-SANOFI-AVENTIS-2013SA041623

PATIENT
  Age: 74 Year
  Sex: Female
  Weight: 67.13 kg

DRUGS (8)
  1. PLAVIX [Suspect]
  2. WARFARIN [Concomitant]
  3. LASIX [Concomitant]
  4. ISOSORBIDE [Concomitant]
  5. AMIODARONE [Concomitant]
  6. CALCIUM [Concomitant]
  7. PRAVASTATIN [Concomitant]
  8. RANITIDINE [Concomitant]

REACTIONS (2)
  - Cerebrovascular accident [Unknown]
  - Hypertension [Unknown]
